FAERS Safety Report 4477337-3 (Version None)
Quarter: 2004Q4

REPORT INFORMATION
  Report Type: 
  Country: None (occurrence: None)
  Receive Date: 20041018
  Receipt Date: 20041007
  Transmission Date: 20050328
  Serious: Yes (Hospitalization)
  Sender: FDA-Public Use
  Company Number: US-JNJFOC-20041003035

PATIENT
  Sex: Female
  Weight: 1.81 kg

DRUGS (1)
  1. DURAGESIC [Suspect]
     Route: 015

REACTIONS (5)
  - BRADYCARDIA FOETAL [None]
  - CAESAREAN SECTION [None]
  - DRUG EXPOSURE DURING PREGNANCY [None]
  - DRUG WITHDRAWAL SYNDROME NEONATAL [None]
  - FOETAL GROWTH RETARDATION [None]
